FAERS Safety Report 9050156 (Version 1)
Quarter: 2013Q1

REPORT INFORMATION
  Report Type: Spontaneous
  Country: US (occurrence: US)
  Receive Date: 20130204
  Receipt Date: 20130204
  Transmission Date: 20140127
  Serious: No
  Sender: FDA-Public Use
  Company Number: US-AMGEN-USASP2013005483

PATIENT
  Age: 70 Year
  Sex: Female
  Weight: 102.49 kg

DRUGS (6)
  1. ENBREL [Suspect]
     Indication: RHEUMATOID ARTHRITIS
     Dosage: 50 MG, QWK
     Route: 058
     Dates: start: 2003
  2. METHOTREXATE [Concomitant]
     Indication: RHEUMATOID ARTHRITIS
     Dosage: 15 MG, QWK
  3. LEVOTHYROXINE [Concomitant]
     Dosage: UNK
  4. CARVEDILOL [Concomitant]
  5. DYAZIDE [Concomitant]
  6. VASOFEN [Concomitant]

REACTIONS (2)
  - Cough [Recovered/Resolved]
  - Influenza [Unknown]
